FAERS Safety Report 14089185 (Version 4)
Quarter: 2017Q4

REPORT INFORMATION
  Report Type: Spontaneous
  Country: US (occurrence: US)
  Receive Date: 20171013
  Receipt Date: 20171215
  Transmission Date: 20180321
  Serious: No
  Sender: FDA-Public Use
  Company Number: US-TAIHO ONCOLOGY INC-EU-2017-01322

PATIENT
  Sex: Male
  Weight: 69.28 kg

DRUGS (2)
  1. LONSURF [Suspect]
     Active Substance: TIPIRACIL HYDROCHLORIDE\TRIFLURIDINE
     Indication: RECTAL CANCER
     Dosage: CYCLE 2 STARTED ON 20OCT2017
     Route: 048
     Dates: start: 20170920, end: 2017
  2. LONSURF [Suspect]
     Active Substance: TIPIRACIL HYDROCHLORIDE\TRIFLURIDINE
     Indication: COLON CANCER

REACTIONS (6)
  - Drug ineffective [Unknown]
  - Confusional state [Unknown]
  - Incorrect dose administered [Unknown]
  - Disease progression [Unknown]
  - Stomatitis [Unknown]
  - Cytopenia [Unknown]

NARRATIVE: CASE EVENT DATE: 2017
